FAERS Safety Report 21112793 (Version 2)
Quarter: 2022Q3

REPORT INFORMATION
  Report Type: Spontaneous
  Country: IL (occurrence: IL)
  Receive Date: 20220721
  Receipt Date: 20220829
  Transmission Date: 20221027
  Serious: Yes (Death)
  Sender: FDA-Public Use
  Company Number: IL-009507513-2207ISR003958

PATIENT
  Sex: Male

DRUGS (2)
  1. SUGAMMADEX SODIUM [Suspect]
     Active Substance: SUGAMMADEX SODIUM
     Dosage: 400 MILLIGRAM, ONCE
  2. ROCURONIUM BROMIDE [Suspect]
     Active Substance: ROCURONIUM BROMIDE
     Dosage: A DRIP

REACTIONS (2)
  - Respiratory disorder [Fatal]
  - Off label use [Unknown]
